FAERS Safety Report 14348379 (Version 3)
Quarter: 2018Q1

REPORT INFORMATION
  Report Type: Spontaneous
  Country: US (occurrence: US)
  Receive Date: 20180103
  Receipt Date: 20180221
  Transmission Date: 20180509
  Serious: Yes (Other)
  Sender: FDA-Public Use
  Company Number: US-BEH-2017086325

PATIENT
  Age: 51 Year
  Sex: Female
  Weight: 65.76 kg

DRUGS (10)
  1. HAEGARDA [Suspect]
     Active Substance: HUMAN C1-ESTERASE INHIBITOR
     Indication: PROPHYLAXIS
     Dosage: 4000 IU, BIW (EVERY 3-4 DAYS)
     Route: 058
     Dates: start: 20170725
  2. EFFIENT [Concomitant]
     Active Substance: PRASUGREL HYDROCHLORIDE
     Dosage: 10 MG, QD
     Route: 065
  3. CILOSTAZOL. [Concomitant]
     Active Substance: CILOSTAZOL
     Dosage: 100 MG, QD
     Route: 065
  4. ATORVASTATIN [Concomitant]
     Active Substance: ATORVASTATIN
     Dosage: 8 MG, QD
     Route: 065
  5. KALBITOR [Concomitant]
     Active Substance: ECALLANTIDE
     Dosage: 30 MG, PRN
     Route: 058
  6. HAEGARDA [Suspect]
     Active Substance: HUMAN C1-ESTERASE INHIBITOR
     Indication: HEREDITARY ANGIOEDEMA
     Dosage: 4000 IU, BIW
     Route: 058
     Dates: start: 20170821
  7. NITROSTAT [Concomitant]
     Active Substance: NITROGLYCERIN
     Dosage: 0.4 MG, PRN
     Route: 060
  8. NASONEX [Concomitant]
     Active Substance: MOMETASONE FUROATE
     Dosage: 2 SPRAYS QD
     Route: 045
  9. BERINERT [Concomitant]
     Active Substance: HUMAN C1-ESTERASE INHIBITOR
     Dosage: 1500 IU, PRN
     Route: 058
  10. RUCONEST [Concomitant]
     Active Substance: HUMAN C1-ESTERASE INHIBITOR
     Dosage: 2100 PRN
     Route: 042

REACTIONS (1)
  - Hereditary angioedema [Recovered/Resolved]

NARRATIVE: CASE EVENT DATE: 20171222
